FAERS Safety Report 9332340 (Version 1)
Quarter: 2013Q2

REPORT INFORMATION
  Report Type: Spontaneous
  Country: KP (occurrence: KR)
  Receive Date: 20130606
  Receipt Date: 20130606
  Transmission Date: 20140414
  Serious: Yes (Other)
  Sender: FDA-Public Use
  Company Number: KR-B.I. PHARMACEUTICALS,INC./RIDGEFIELD-2013-BI-16091YA

PATIENT
  Age: 70 Year
  Sex: Male

DRUGS (4)
  1. HARNAL [Suspect]
     Route: 048
  2. NEUROCARN [Concomitant]
     Route: 048
     Dates: start: 20130502
  3. ACETAMINOPHEN [Concomitant]
     Route: 048
     Dates: start: 20130512, end: 20130512
  4. IBUPROFEN [Concomitant]
     Route: 048
     Dates: start: 20130512, end: 20130512

REACTIONS (3)
  - Orthostatic hypotension [Recovered/Resolved]
  - Loss of consciousness [Recovered/Resolved]
  - Nasopharyngitis [Recovered/Resolved]
